FAERS Safety Report 7710993-2 (Version None)
Quarter: 2011Q3

REPORT INFORMATION
  Report Type: 
  Country: None (occurrence: None)
  Receive Date: 20110825
  Receipt Date: 20110818
  Transmission Date: 20111222
  Serious: Yes (Hospitalization, Disabling, Other)
  Sender: FDA-Public Use
  Company Number: US-ASTRAZENECA-2011SE11830

PATIENT
  Age: 49 Year
  Sex: Male
  Weight: 56.7 kg

DRUGS (10)
  1. SEROQUEL [Suspect]
     Route: 048
     Dates: start: 20060101
  2. PRAVACHOL [Concomitant]
     Indication: HYPERCHOLESTEROLAEMIA
  3. NEXIUM [Suspect]
     Route: 048
     Dates: start: 20100801
  4. SEROQUEL [Suspect]
     Indication: BIPOLAR DISORDER
     Route: 048
     Dates: start: 20060101
  5. SEROQUEL [Suspect]
     Indication: AFFECTIVE DISORDER
     Route: 048
     Dates: start: 20060101
  6. FLOMAX [Concomitant]
     Indication: PROSTATOMEGALY
  7. SEROQUEL [Suspect]
     Indication: NERVOUSNESS
     Route: 048
     Dates: start: 20060101
  8. SEROQUEL [Suspect]
     Route: 048
     Dates: start: 20060101
  9. PAMALOR [Concomitant]
  10. SEROQUEL [Suspect]
     Route: 048
     Dates: start: 20060101

REACTIONS (13)
  - GUILLAIN-BARRE SYNDROME [None]
  - BACK PAIN [None]
  - GENERAL PHYSICAL HEALTH DETERIORATION [None]
  - CONFUSIONAL STATE [None]
  - OFF LABEL USE [None]
  - PAIN IN EXTREMITY [None]
  - HERPES ZOSTER [None]
  - DISABILITY [None]
  - MEMORY IMPAIRMENT [None]
  - CEREBROVASCULAR ACCIDENT [None]
  - WHEELCHAIR USER [None]
  - MALAISE [None]
  - MENTAL IMPAIRMENT [None]
